FAERS Safety Report 9436446 (Version 1)
Quarter: 2013Q3

REPORT INFORMATION
  Report Type: Spontaneous
  Country: US (occurrence: US)
  Receive Date: 20130802
  Receipt Date: 20130802
  Transmission Date: 20140515
  Serious: No
  Sender: FDA-Public Use
  Company Number: US-009507513-1307USA014552

PATIENT
  Sex: Female

DRUGS (3)
  1. DULERA [Suspect]
     Route: 055
  2. HYDROCHLOROTHIAZIDE [Concomitant]
     Route: 048
  3. PREMPRO [Concomitant]

REACTIONS (2)
  - Erythema [Unknown]
  - Pruritus [Unknown]
